FAERS Safety Report 9718295 (Version 1)
Quarter: 2013Q4

REPORT INFORMATION
  Report Type: Spontaneous
  Country: US (occurrence: US)
  Receive Date: 20131125
  Receipt Date: 20131125
  Transmission Date: 20140711
  Serious: No
  Sender: FDA-Public Use
  Company Number: US-VIVUS-2013V1000227

PATIENT
  Age: 45 Year
  Sex: Female
  Weight: 120.31 kg

DRUGS (1)
  1. QSYMIA 3.75MG/23MG [Suspect]
     Indication: WEIGHT DECREASED
     Route: 048
     Dates: start: 20130315, end: 20130322

REACTIONS (5)
  - Ophthalmological examination abnormal [Unknown]
  - Halo vision [Recovered/Resolved]
  - Conjunctival oedema [Recovered/Resolved]
  - Vision blurred [Recovered/Resolved]
  - Visual impairment [Recovered/Resolved]
